FAERS Safety Report 7974633-X (Version None)
Quarter: 2011Q4

REPORT INFORMATION
  Report Type: 
  Country: None (occurrence: None)
  Receive Date: 20111213
  Receipt Date: 20111130
  Transmission Date: 20120403
  Serious: Yes (Other)
  Sender: FDA-Public Use
  Company Number: FR-ACTELION-A-CH2011-54019

PATIENT
  Sex: Female
  Weight: 47 kg

DRUGS (2)
  1. ZAVESCA [Suspect]
     Indication: NIEMANN-PICK DISEASE
     Dosage: UNK MG, UNK
     Route: 048
     Dates: start: 20100501, end: 20111001
  2. ZAVESCA [Suspect]
     Dosage: UNK MG, UNK
     Route: 048
     Dates: start: 20111110

REACTIONS (6)
  - MENTAL IMPAIRMENT [None]
  - DYSPHAGIA [None]
  - APPETITE DISORDER [None]
  - NIEMANN-PICK DISEASE [None]
  - CONDITION AGGRAVATED [None]
  - WEIGHT DECREASED [None]
